FAERS Safety Report 8300258-2 (Version None)
Quarter: 2012Q2

REPORT INFORMATION
  Report Type: 
  Country: None (occurrence: None)
  Receive Date: 20120420
  Receipt Date: 20120411
  Transmission Date: 20120825
  Serious: Yes (Hospitalization, Other)
  Sender: FDA-Public Use
  Company Number: CA-JNJFOC-20110901940

PATIENT
  Sex: Female
  Weight: 62 kg

DRUGS (4)
  1. WELLBUTRIN [Concomitant]
     Route: 065
  2. REMICADE [Suspect]
     Route: 042
     Dates: start: 20071101
  3. REMICADE [Suspect]
     Indication: CROHN'S DISEASE
     Route: 042
     Dates: start: 20120105
  4. REMICADE [Suspect]
     Route: 042
     Dates: start: 20110301

REACTIONS (5)
  - FUNGAL INFECTION [None]
  - PROLONGED LABOUR [None]
  - MATERNAL EXPOSURE DURING PREGNANCY [None]
  - CYSTITIS [None]
  - UTERINE INFECTION [None]
